FAERS Safety Report 21491117 (Version 1)
Quarter: 2022Q4

REPORT INFORMATION
  Report Type: Spontaneous
  Country: US (occurrence: US)
  Receive Date: 20221021
  Receipt Date: 20221021
  Transmission Date: 20230113
  Serious: Yes (Other)
  Sender: FDA-Public Use
  Company Number: US-SA-SAC20221019000801

PATIENT
  Sex: Female

DRUGS (3)
  1. DUPIXENT [Suspect]
     Active Substance: DUPILUMAB
     Indication: Urticaria
     Dosage: UNKNOWN
     Route: 058
  2. DUPIXENT [Suspect]
     Active Substance: DUPILUMAB
     Indication: Pruritus
  3. PREDNISONE [Suspect]
     Active Substance: PREDNISONE
     Dosage: UNK

REACTIONS (11)
  - Neuropathy peripheral [Unknown]
  - Pain [Unknown]
  - Weight increased [Unknown]
  - Gingival swelling [Unknown]
  - Gait disturbance [Unknown]
  - Nasal congestion [Recovered/Resolved]
  - Peripheral swelling [Unknown]
  - Urticaria [Recovered/Resolved]
  - Arthralgia [Unknown]
  - Product use issue [Unknown]
  - Product use in unapproved indication [Unknown]
